FAERS Safety Report 4448517-8 (Version None)
Quarter: 2004Q3

REPORT INFORMATION
  Report Type: 
  Country: None (occurrence: None)
  Receive Date: 20040909
  Receipt Date: 20040830
  Transmission Date: 20050211
  Serious: Yes (Death, Hospitalization, Other)
  Sender: FDA-Public Use
  Company Number: 001019

PATIENT
  Age: 59 Year
  Sex: Male

DRUGS (3)
  1. ZEVALIN [Suspect]
     Indication: NON-HODGKIN'S LYMPHOMA
     Dosage: SEE IMAGE
     Route: 042
     Dates: start: 20040501, end: 20040501
  2. ZEVALIN [Suspect]
     Indication: NON-HODGKIN'S LYMPHOMA
     Dosage: SEE IMAGE
     Route: 042
     Dates: start: 20040514, end: 20040514
  3. ZEVALIN [Suspect]
     Indication: NON-HODGKIN'S LYMPHOMA
     Dosage: SEE IMAGE
     Route: 042
     Dates: start: 20040514, end: 20040514

REACTIONS (5)
  - HAEMORRHAGIC STROKE [None]
  - NEOPLASM PROGRESSION [None]
  - PANCYTOPENIA [None]
  - SEPSIS [None]
  - SPLENIC MARGINAL ZONE LYMPHOMA [None]
